FAERS Safety Report 7892382-3 (Version None)
Quarter: 2011Q4

REPORT INFORMATION
  Report Type: 
  Country: None (occurrence: None)
  Receive Date: 20111104
  Receipt Date: 20111026
  Transmission Date: 20120403
  Serious: Yes (Hospitalization)
  Sender: FDA-Public Use
  Company Number: CA-JNJFOC-20111013128

PATIENT
  Sex: Female
  Weight: 55 kg

DRUGS (6)
  1. REMICADE [Suspect]
     Indication: CROHN'S DISEASE
     Route: 042
     Dates: start: 20070401
  2. CODEINE SULFATE [Concomitant]
     Route: 065
  3. PREDNISONE [Concomitant]
     Route: 048
  4. REMERON [Concomitant]
     Route: 065
  5. VITAMIN B-12 [Concomitant]
     Route: 065
  6. CLONAZEPAM [Concomitant]
     Route: 065

REACTIONS (3)
  - GASTROENTERITIS VIRAL [None]
  - GASTROINTESTINAL OBSTRUCTION [None]
  - POST PROCEDURAL HAEMORRHAGE [None]
